FAERS Safety Report 9688982 (Version 1)
Quarter: 2013Q4

REPORT INFORMATION
  Report Type: Spontaneous
  Country: GB (occurrence: GB)
  Receive Date: 20131114
  Receipt Date: 20131114
  Transmission Date: 20140711
  Serious: Yes (Other)
  Sender: FDA-Public Use
  Company Number: GB-GLAXOSMITHKLINE-B0941625A

PATIENT
  Age: 18 Year
  Sex: Male

DRUGS (4)
  1. ELTROMBOPAG [Suspect]
     Indication: IMMUNE THROMBOCYTOPENIC PURPURA
     Dosage: 50MG PER DAY
  2. PREDNISOLONE [Concomitant]
  3. IVIG [Concomitant]
  4. ANTIRETROVIRAL MEDICATIONS [Concomitant]

REACTIONS (2)
  - Blood HIV RNA increased [Unknown]
  - Drug ineffective [Unknown]
